FAERS Safety Report 9805274 (Version 1)
Quarter: 2014Q1

REPORT INFORMATION
  Report Type: Spontaneous
  Country: US (occurrence: None)
  Receive Date: 20140107
  Receipt Date: 20140107
  Transmission Date: 20141002
  Serious: No
  Sender: FDA-Public Use
  Company Number: None

PATIENT
  Age: 60 Year
  Sex: Male
  Weight: 101 kg

DRUGS (2)
  1. INSULIN [Suspect]
     Indication: DIABETES MELLITUS
     Dates: start: 20040716
  2. INSULIN [Suspect]
     Indication: DIABETES MELLITUS
     Dates: start: 20120419

REACTIONS (5)
  - Unresponsive to stimuli [None]
  - Hypoglycaemia [None]
  - Blood glucose increased [None]
  - Pneumonia [None]
  - Renal failure acute [None]
